FAERS Safety Report 16158821 (Version 1)
Quarter: 2019Q2

REPORT INFORMATION
  Report Type: Spontaneous
  Country: ZA (occurrence: ZA)
  Receive Date: 20190404
  Receipt Date: 20190404
  Transmission Date: 20190711
  Serious: Yes (Other)
  Sender: FDA-Public Use
  Company Number: ZA-SA-2019SA087426

PATIENT
  Sex: Female

DRUGS (6)
  1. COXFLAM [Concomitant]
     Active Substance: MELOXICAM
  2. CHLOROQUINE. [Suspect]
     Active Substance: CHLOROQUINE
     Dosage: UNK
     Dates: start: 20151014, end: 20151014
  3. ARAVA [Suspect]
     Active Substance: LEFLUNOMIDE
     Dosage: UNK
     Dates: start: 20151014
  4. VIMOVO [Concomitant]
     Active Substance: ESOMEPRAZOLE MAGNESIUM\NAPROXEN
  5. METHOTREXATE. [Concomitant]
     Active Substance: METHOTREXATE
     Dosage: UNK
     Dates: start: 20141114, end: 20151014
  6. XEFO [Concomitant]
     Active Substance: LORNOXICAM

REACTIONS (2)
  - Ankylosing spondylitis [Unknown]
  - HLA-B*27 positive [Unknown]
